FAERS Safety Report 9447813 (Version 1)
Quarter: 2013Q3

REPORT INFORMATION
  Report Type: Spontaneous
  Country: FR (occurrence: None)
  Receive Date: 20130805
  Receipt Date: 20130805
  Transmission Date: 20140515
  Serious: Yes (Hospitalization)
  Sender: FDA-Public Use
  Company Number: 1754160

PATIENT
  Age: 66 Year
  Sex: Male

DRUGS (9)
  1. CARBOPLATIN [Suspect]
     Indication: HYPOPHARYNGEAL CANCER STAGE II
     Dosage: NOT OTHERWISE SPECIFIED
     Route: 042
     Dates: start: 20101007, end: 20101105
  2. ERBITUX [Suspect]
     Indication: HYPOPHARYNGEAL CANCER STAGE II
     Dosage: NOT OTHERWISE SPECIFIED
     Route: 042
     Dates: start: 20101007, end: 20101105
  3. ATACAND [Suspect]
     Indication: HYPERTENSION
     Route: 048
     Dates: end: 20101109
  4. LERCAN [Suspect]
     Indication: HYPERTENSION
     Route: 048
     Dates: end: 20101109
  5. PROPANOLOL [Concomitant]
  6. CRESTOR [Concomitant]
  7. KAYEXALATE [Concomitant]
  8. TICLID [Concomitant]
  9. INEXIUM [Concomitant]

REACTIONS (5)
  - Renal failure acute [None]
  - Hypovolaemic shock [None]
  - Vomiting [None]
  - Diarrhoea [None]
  - Pancytopenia [None]
